FAERS Safety Report 20643915 (Version 1)
Quarter: 2022Q1

REPORT INFORMATION
  Report Type: Spontaneous
  Country: US (occurrence: None)
  Receive Date: 20220325
  Receipt Date: 20220325
  Transmission Date: 20220423
  Serious: Yes (Hospitalization)
  Sender: FDA-Public Use
  Company Number: None

PATIENT
  Age: 83 Year
  Sex: Female

DRUGS (10)
  1. OPSUMIT [Suspect]
     Active Substance: MACITENTAN
     Indication: Pulmonary arterial hypertension
     Dosage: FREQUENCY : DAILY;?
     Route: 048
     Dates: start: 20171102
  2. SILDENAFIL [Concomitant]
     Active Substance: SILDENAFIL
  3. POTASSIUM CHLORIDE [Concomitant]
  4. ALBUTEROL HFA [Concomitant]
  5. SPIRIVA RESPIMAT [Concomitant]
  6. ATORVASTATIN [Concomitant]
     Active Substance: ATORVASTATIN
  7. albuterol   inhl   neb soln [Concomitant]
  8. WIXELA INHUB [Concomitant]
     Active Substance: FLUTICASONE PROPIONATE\SALMETEROL XINAFOATE
  9. VITAMIN D3 [Concomitant]
  10. VITAMINS [Concomitant]
     Active Substance: VITAMINS

REACTIONS (3)
  - Hypoxia [None]
  - Hyponatraemia [None]
  - Hypokalaemia [None]

NARRATIVE: CASE EVENT DATE: 20220312
